FAERS Safety Report 10472985 (Version 2)
Quarter: 2014Q4

REPORT INFORMATION
  Report Type: Report from Study
  Country: US (occurrence: US)
  Receive Date: 20140924
  Receipt Date: 20141007
  Transmission Date: 20150528
  Serious: Yes (Hospitalization)
  Sender: FDA-Public Use
  Company Number: US-ACTELION-A-US2014-105353

PATIENT
  Age: 57 Year
  Sex: Female

DRUGS (1)
  1. VELETRI [Suspect]
     Active Substance: EPOPROSTENOL
     Indication: COR PULMONALE CHRONIC
     Dosage: 20 NG/KG, PER MIN
     Route: 042
     Dates: start: 20130311

REACTIONS (2)
  - Alcohol detoxification [Unknown]
  - Alcohol rehabilitation [Unknown]

NARRATIVE: CASE EVENT DATE: 20140826
